FAERS Safety Report 5914477-3 (Version None)
Quarter: 2008Q4

REPORT INFORMATION
  Report Type: 
  Country: None (occurrence: None)
  Receive Date: 20081007
  Receipt Date: 20080922
  Transmission Date: 20090506
  Serious: No
  Sender: FDA-Public Use
  Company Number: KADN20080358

PATIENT
  Age: 60 Year
  Sex: Male

DRUGS (2)
  1. MORPHINE SULFATE INJ [Suspect]
     Indication: BACK PAIN
     Dosage: ORAL
     Route: 048
  2. OXYCODONE HCL [Suspect]
     Indication: BACK PAIN
     Dosage: ORAL
     Route: 048

REACTIONS (10)
  - COMPRESSION FRACTURE [None]
  - DEPRESSED MOOD [None]
  - EXERCISE LACK OF [None]
  - FATIGUE [None]
  - FRACTURE NONUNION [None]
  - HYPOGONADISM [None]
  - IMPAIRED HEALING [None]
  - LIBIDO DECREASED [None]
  - MUSCULAR WEAKNESS [None]
  - SARCOPENIA [None]
